FAERS Safety Report 7320436-9 (Version None)
Quarter: 2011Q1

REPORT INFORMATION
  Report Type: 
  Country: None (occurrence: None)
  Receive Date: 20110228
  Receipt Date: 20110216
  Transmission Date: 20110831
  Serious: Yes (Other)
  Sender: FDA-Public Use
  Company Number: A0915353A

PATIENT
  Sex: Female
  Weight: 45 kg

DRUGS (19)
  1. RANITIDINE [Suspect]
     Dosage: 150MG TWICE PER DAY
     Dates: start: 20110106
  2. IMMUNE GLOBULIN IV [Suspect]
     Dosage: 15G FOUR TIMES PER DAY
     Route: 042
     Dates: start: 20110106, end: 20110108
  3. DIMENHYDRINATE [Concomitant]
  4. COTAZYM [Concomitant]
  5. NOREPINEPHRINE BITARTRATE [Concomitant]
  6. HYPROMELLOSE [Concomitant]
  7. ALBUTEROL [Concomitant]
  8. SENNOSIDE [Concomitant]
  9. PARACETAMOL [Suspect]
     Indication: PAIN
  10. SODIUM BICARBONATE [Concomitant]
  11. CHLORHEXIDINE GLUCONATE [Concomitant]
  12. LEVOFLOXACIN [Concomitant]
  13. VASOPRESSIN [Concomitant]
  14. METOCLOPRAMIDE HCL [Concomitant]
  15. DOCUSATE SODIUM [Concomitant]
  16. CEFTRIAXONE [Suspect]
     Route: 042
     Dates: start: 20110103
  17. MIDAZOLAM HCL [Concomitant]
  18. MULTIVITAMIN [Concomitant]
  19. DALTEPARIN SODIUM [Concomitant]

REACTIONS (8)
  - JAUNDICE [None]
  - BLOOD BILIRUBIN INCREASED [None]
  - HAEMOLYSIS [None]
  - BETA HAEMOLYTIC STREPTOCOCCAL INFECTION [None]
  - HAEMOGLOBIN DECREASED [None]
  - RED BLOOD CELL AGGLUTINATION [None]
  - SPHEROCYTIC ANAEMIA [None]
  - RETICULOCYTE COUNT INCREASED [None]
